FAERS Safety Report 21977901 (Version 1)
Quarter: 2023Q1

REPORT INFORMATION
  Report Type: Spontaneous
  Country: IN (occurrence: IN)
  Receive Date: 20230210
  Receipt Date: 20230210
  Transmission Date: 20230417
  Serious: Yes (Other)
  Sender: FDA-Public Use
  Company Number: IN-MYLANLABS-2023M1014426

PATIENT
  Age: 27 Year
  Sex: Male

DRUGS (3)
  1. ETORICOXIB [Suspect]
     Active Substance: ETORICOXIB
     Indication: Complex regional pain syndrome
     Dosage: 90 MILLIGRAM, BID
     Route: 065
     Dates: start: 2022
  2. METHOTREXATE [Suspect]
     Active Substance: METHOTREXATE
     Indication: Bone marrow oedema
     Dosage: UNK
     Route: 065
     Dates: start: 2022
  3. SULFASALAZINE [Suspect]
     Active Substance: SULFASALAZINE
     Indication: Bone marrow oedema
     Dosage: UNK
     Route: 065
     Dates: start: 2022

REACTIONS (1)
  - Drug ineffective [Unknown]

NARRATIVE: CASE EVENT DATE: 20220101
